FAERS Safety Report 4336884-5 (Version None)
Quarter: 2004Q2

REPORT INFORMATION
  Report Type: 
  Country: None (occurrence: None)
  Receive Date: 20040407
  Receipt Date: 20030331
  Transmission Date: 20050107
  Serious: Yes (Other)
  Sender: FDA-Public Use
  Company Number: USA030432921

PATIENT
  Age: 14 Year
  Sex: Male
  Weight: 105 kg

DRUGS (3)
  1. ZYPREXA [Suspect]
     Indication: BIPOLAR DISORDER
     Dosage: 2.5 MG
     Dates: start: 20020101
  2. ZYPREXA [Suspect]
     Indication: DEPRESSION
     Dosage: 2.5 MG
     Dates: start: 20020101
  3. ZOLOFT [Concomitant]

REACTIONS (2)
  - HEPATIC NECROSIS [None]
  - HEPATIC STEATOSIS [None]
